FAERS Safety Report 5229751-6 (Version None)
Quarter: 2007Q1

REPORT INFORMATION
  Report Type: 
  Country: None (occurrence: None)
  Receive Date: 20070201
  Receipt Date: 20070119
  Transmission Date: 20070707
  Serious: Yes (Hospitalization, Other)
  Sender: FDA-Public Use
  Company Number: PAR_1301_2007

PATIENT
  Age: 70 Year
  Sex: Male

DRUGS (1)
  1. PERGOLIDE MESYLATE [Suspect]
     Indication: PARKINSON'S DISEASE
     Dosage: 6 MG QDAY

REACTIONS (3)
  - AORTIC VALVE DISEASE MIXED [None]
  - CARDIAC FAILURE [None]
  - DYSPNOEA EXERTIONAL [None]
